FAERS Safety Report 12881489 (Version 4)
Quarter: 2016Q4

REPORT INFORMATION
  Report Type: Report from Study
  Country: BR (occurrence: BR)
  Receive Date: 20161025
  Receipt Date: 20161228
  Transmission Date: 20170207
  Serious: Yes (Life-Threatening, Hospitalization, Other)
  Sender: FDA-Public Use
  Company Number: PHHY2016BR094944

PATIENT
  Sex: Male
  Weight: 80 kg

DRUGS (2)
  1. SANDOSTATIN LAR DEPOT [Suspect]
     Active Substance: OCTREOTIDE ACETATE
     Indication: NEUROENDOCRINE TUMOUR
     Dosage: 20 MG, QMO (EVERY 30 DAYS)
     Route: 030
     Dates: start: 201403
  2. SANDOSTATIN LAR DEPOT [Suspect]
     Active Substance: OCTREOTIDE ACETATE
     Indication: PANCREATIC CARCINOMA
     Dosage: 30 MG, QMO
     Route: 030

REACTIONS (9)
  - Femur fracture [Unknown]
  - Pneumonia aspiration [Unknown]
  - Coma [Not Recovered/Not Resolved]
  - Abasia [Unknown]
  - Drug ineffective [Unknown]
  - Embolism [Not Recovered/Not Resolved]
  - Pneumonia [Unknown]
  - Pain [Unknown]
  - Osteoporosis [Not Recovered/Not Resolved]
